FAERS Safety Report 20854424 (Version 1)
Quarter: 2022Q2

REPORT INFORMATION
  Report Type: Report from Study
  Country: US (occurrence: US)
  Receive Date: 20220520
  Receipt Date: 20220520
  Transmission Date: 20220721
  Serious: Yes (Other)
  Sender: FDA-Public Use
  Company Number: US-TAKEDA-2022TUS032737

PATIENT
  Sex: Female

DRUGS (2)
  1. MARIBAVIR [Suspect]
     Active Substance: MARIBAVIR
     Indication: Acute myeloid leukaemia (in remission)
     Dosage: 200 MILLIGRAM, BID
     Route: 048
  2. TIBSOVO [Suspect]
     Active Substance: IVOSIDENIB
     Indication: Acute myeloid leukaemia (in remission)
     Route: 065

REACTIONS (2)
  - Acute myeloid leukaemia recurrent [Unknown]
  - Off label use [Unknown]
